FAERS Safety Report 6202062-8 (Version None)
Quarter: 2009Q2

REPORT INFORMATION
  Report Type: 
  Country: None (occurrence: None)
  Receive Date: 20090526
  Receipt Date: 20090515
  Transmission Date: 20091009
  Serious: Yes (Death)
  Sender: FDA-Public Use
  Company Number: B0575302A

PATIENT
  Sex: Male
  Weight: 50 kg

DRUGS (3)
  1. AUGMENTIN '125' [Suspect]
     Indication: PROPHYLAXIS
     Route: 042
     Dates: start: 20070717, end: 20070719
  2. METRONIDAZOLE [Concomitant]
     Route: 042
     Dates: start: 20070717, end: 20070719
  3. CIPRINOL [Concomitant]
     Route: 042
     Dates: start: 20070721, end: 20070721

REACTIONS (5)
  - GASTROINTESTINAL HAEMORRHAGE [None]
  - MYOCARDIAL INFARCTION [None]
  - PNEUMONIA [None]
  - RENAL IMPAIRMENT [None]
  - SEPTIC SHOCK [None]
